FAERS Safety Report 5661176-1 (Version None)
Quarter: 2008Q1

REPORT INFORMATION
  Report Type: 
  Country: None (occurrence: None)
  Receive Date: 20080312
  Receipt Date: 20080312
  Transmission Date: 20080703
  Serious: Yes (Death)
  Sender: FDA-Public Use
  Company Number: None

PATIENT
  Sex: Male
  Weight: 68.0396 kg

DRUGS (1)
  1. HEPARIN [Suspect]
     Dates: start: 20080211, end: 20080211

REACTIONS (7)
  - ANAESTHETIC COMPLICATION [None]
  - CARDIAC DISORDER [None]
  - DRUG HYPERSENSITIVITY [None]
  - LUNG DISORDER [None]
  - PETECHIAE [None]
  - PULMONARY HAEMORRHAGE [None]
  - RENAL FAILURE [None]
